FAERS Safety Report 5010459-7 (Version None)
Quarter: 2006Q2

REPORT INFORMATION
  Report Type: 
  Country: None (occurrence: None)
  Receive Date: 20060523
  Receipt Date: 20060523
  Transmission Date: 20061013
  Serious: Yes (Death)
  Sender: FDA-Public Use
  Company Number: None

PATIENT
  Age: 56 Year
  Sex: Female

DRUGS (2)
  1. OMNIPAQUE 300 [Suspect]
     Dosage: 100 ML IV
     Route: 042
     Dates: start: 20051228
  2. DILAUDID [Suspect]
     Dosage: 1 MG
     Dates: start: 20051228

REACTIONS (8)
  - CARDIO-RESPIRATORY ARREST [None]
  - CHEST PAIN [None]
  - ELECTROCARDIOGRAM QT PROLONGED [None]
  - ELECTROCARDIOGRAM ST SEGMENT DEPRESSION [None]
  - HYPOTENSION [None]
  - LOSS OF CONSCIOUSNESS [None]
  - PROCEDURAL COMPLICATION [None]
  - RESPIRATORY RATE INCREASED [None]
